FAERS Safety Report 6785230-6 (Version None)
Quarter: 2010Q2

REPORT INFORMATION
  Report Type: 
  Country: None (occurrence: None)
  Receive Date: 20100622
  Receipt Date: 20100622
  Transmission Date: 20101027
  Serious: Yes (Life-Threatening, Hospitalization, Other)
  Sender: FDA-Public Use
  Company Number: None

PATIENT
  Age: 48 Year
  Sex: Female
  Weight: 68.0396 kg

DRUGS (1)
  1. TRANSDERM SCOP [Suspect]
     Indication: MOTION SICKNESS
     Dosage: 1 PATCH EVERT 3 DAYS, TRANSDERMAL
     Route: 062
     Dates: start: 20100523, end: 20100618

REACTIONS (4)
  - DEHYDRATION [None]
  - NAUSEA [None]
  - VOMITING [None]
  - WITHDRAWAL SYNDROME [None]
